FAERS Safety Report 8525941 (Version 2)
Quarter: 2013Q1

REPORT INFORMATION
  Report Type: Spontaneous
  Country: FR (occurrence: FR)
  Receive Date: 20120423
  Receipt Date: 20130208
  Transmission Date: 20140127
  Serious: Yes (Life-Threatening, Hospitalization, Other)
  Sender: FDA-Public Use
  Company Number: FR-ASTRAZENECA-2012SE25510

PATIENT
  Age: 31715 Day
  Sex: Female

DRUGS (8)
  1. ATACAND [Suspect]
     Indication: HYPERTENSION
     Route: 048
     Dates: end: 20120213
  2. ATACAND [Suspect]
     Indication: HYPERTENSION
     Route: 048
     Dates: start: 20120217
  3. FLUDEX [Suspect]
     Indication: HYPERTENSION
     Route: 048
     Dates: end: 20120213
  4. MEDIATENSYL [Suspect]
     Indication: HYPERTENSION
     Route: 048
     Dates: end: 20120213
  5. DETENSIEL [Suspect]
     Indication: HYPERTENSION
     Route: 048
     Dates: end: 20120213
  6. TAHOR [Concomitant]
  7. IDEOS [Concomitant]
  8. AERIUS [Concomitant]

REACTIONS (4)
  - Accidental overdose [Recovered/Resolved]
  - Hypovolaemic shock [Recovered/Resolved]
  - Anaemia [Unknown]
  - Thrombocytopenia [Unknown]
